FAERS Safety Report 25022392 (Version 1)
Quarter: 2025Q1

REPORT INFORMATION
  Report Type: Spontaneous
  Country: US (occurrence: US)
  Receive Date: 20250228
  Receipt Date: 20250228
  Transmission Date: 20250408
  Serious: No
  Sender: SANDOZ
  Company Number: US-SANDOZ-SDZ2025US012303

PATIENT
  Sex: Female

DRUGS (1)
  1. ONDANSETRON [Suspect]
     Active Substance: ONDANSETRON
     Indication: Abdominal discomfort
     Dosage: UNK, TID
     Route: 048

REACTIONS (2)
  - Hidradenitis [Unknown]
  - Pain [Unknown]
